FAERS Safety Report 5199705-7 (Version None)
Quarter: 2007Q1

REPORT INFORMATION
  Report Type: 
  Country: None (occurrence: None)
  Receive Date: 20070105
  Receipt Date: 20061228
  Transmission Date: 20070707
  Serious: Yes (Other)
  Sender: FDA-Public Use
  Company Number: DE-JNJFOC-20050606663

PATIENT
  Age: 68 Year
  Sex: Female

DRUGS (15)
  1. RISPERDAL [Suspect]
     Route: 048
  2. RISPERDAL [Suspect]
     Indication: DRUG USE FOR UNKNOWN INDICATION
     Route: 048
  3. RISPERDAL CONSTA [Suspect]
     Indication: DRUG USE FOR UNKNOWN INDICATION
     Route: 030
  4. RISPERDAL CONSTA [Suspect]
     Dosage: ALSO GIVEN ON 18 DEC 04
     Route: 030
  5. SEROQUEL [Suspect]
     Route: 048
  6. SEROQUEL [Suspect]
     Dosage: 400-150 REPORTED DOSAGE
     Route: 048
  7. SEROQUEL [Suspect]
     Dosage: ON 11-DEC-04, 12-DEC-05 AND 14-DEC-04 300MG WAS RECEIVED.
     Route: 048
  8. SEROQUEL [Suspect]
     Route: 048
  9. SEROQUEL [Suspect]
     Route: 048
  10. SEROQUEL [Suspect]
     Indication: DRUG USE FOR UNKNOWN INDICATION
     Route: 048
  11. ERGENYL [Concomitant]
     Route: 048
  12. ERGENYL [Concomitant]
     Route: 048
  13. ERGENYL [Concomitant]
     Route: 048
  14. ATACAND [Concomitant]
     Route: 048
  15. EUTHYROX [Concomitant]
     Dosage: PATIENT HAD BEEN TAKING DRUG FOR SOME TIME.

REACTIONS (7)
  - FATIGUE [None]
  - NAUSEA [None]
  - SEDATION [None]
  - SUPRAVENTRICULAR EXTRASYSTOLES [None]
  - SYNCOPE [None]
  - URINARY INCONTINENCE [None]
  - VENTRICULAR EXTRASYSTOLES [None]
